FAERS Safety Report 8426963 (Version 2)
Quarter: 2018Q4

REPORT INFORMATION
  Report Type: Spontaneous
  Country: US (occurrence: US)
  Receive Date: 20120227
  Receipt Date: 20181008
  Transmission Date: 20190205
  Serious: Yes (Other)
  Sender: FDA-Public Use
  Company Number: US-SANOFI-AVENTIS-2012SA010285

PATIENT
  Age: 62 Year
  Sex: Male

DRUGS (7)
  1. LANTUS SOLOSTAR [Interacting]
     Active Substance: INSULIN GLARGINE
     Dosage: 22 DF,QD
     Route: 058
     Dates: start: 2002
  2. TRULICITY [Interacting]
     Active Substance: DULAGLUTIDE
     Dosage: UNK UNK, UNK
  3. LANTUS SOLOSTAR [Interacting]
     Active Substance: INSULIN GLARGINE
     Dosage: 10 U
  4. SOLOSTAR [Suspect]
     Active Substance: DEVICE
     Indication: TYPE 2 DIABETES MELLITUS
     Dates: start: 2002
  5. SOLOSTAR [Suspect]
     Active Substance: DEVICE
     Dates: start: 2002
  6. NOVOLOG [Concomitant]
     Active Substance: INSULIN ASPART
     Dosage: UNK, UNK
  7. LANTUS SOLOSTAR [Suspect]
     Active Substance: INSULIN GLARGINE
     Indication: TYPE 2 DIABETES MELLITUS
     Dosage: 22 DF,QD
     Route: 058
     Dates: start: 2002

REACTIONS (5)
  - Incorrect dose administered by device [Unknown]
  - Headache [Unknown]
  - Device operational issue [Unknown]
  - Product use issue [Unknown]
  - Blindness [Not Recovered/Not Resolved]
